FAERS Safety Report 6238017-7 (Version None)
Quarter: 2009Q2

REPORT INFORMATION
  Report Type: 
  Country: None (occurrence: None)
  Receive Date: 20090617
  Receipt Date: 20090603
  Transmission Date: 20091009
  Serious: Yes (Disabling)
  Sender: FDA-Public Use
  Company Number: 2009-0908

PATIENT
  Age: 37 Year
  Sex: Female

DRUGS (1)
  1. DYSPORT [Suspect]
     Indication: MUSCLE SPASTICITY
     Dosage: (500 UNITS, ONCE), INTRAMUSCULAR
     Route: 030
     Dates: start: 20090422

REACTIONS (1)
  - MUSCULAR WEAKNESS [None]
